FAERS Safety Report 7817066-9 (Version None)
Quarter: 2011Q4

REPORT INFORMATION
  Report Type: 
  Country: None (occurrence: None)
  Receive Date: 20111017
  Receipt Date: 20111011
  Transmission Date: 20120403
  Serious: Yes (Other)
  Sender: FDA-Public Use
  Company Number: PHEH2011US06544

PATIENT
  Sex: Female

DRUGS (10)
  1. SERTRALINE HYDROCHLORIDE [Concomitant]
     Dosage: 100 MG, 1X DAY
  2. FOLIC ACID [Concomitant]
     Dosage: 400 MG, 1X DAY
  3. ZETIA [Concomitant]
     Dosage: 10 MG, 1X DAY
  4. LORAZEPAM [Concomitant]
     Dosage: 1 MG, 3 X DAY
  5. VITAMIN D [Concomitant]
     Dosage: 1000 IU, 1X DAY
  6. RECLAST [Suspect]
     Dosage: UNK UKN, UNK
     Route: 042
  7. PLAVIX [Concomitant]
     Dosage: 75 MG, 1X DAY
  8. VITAMIN B-12 [Concomitant]
     Dosage: 1 CC WKY
  9. CRESTOR [Concomitant]
     Dosage: 40 MG, 1 X DAY
  10. ATENOLOL [Concomitant]
     Dosage: 25 MG, 1X DAY

REACTIONS (3)
  - CYSTITIS [None]
  - BLOOD URINE PRESENT [None]
  - PROTEIN URINE [None]
